FAERS Safety Report 21989552 (Version 2)
Quarter: 2023Q1

REPORT INFORMATION
  Report Type: Spontaneous
  Country: SI (occurrence: None)
  Receive Date: 20230214
  Receipt Date: 20230330
  Transmission Date: 20230418
  Serious: Yes (Hospitalization)
  Sender: FDA-Public Use
  Company Number: 2023A030096

PATIENT
  Age: 65 Year
  Sex: Female
  Weight: 80 kg

DRUGS (18)
  1. ROSUVASTATIN [Suspect]
     Active Substance: ROSUVASTATIN
     Indication: Cardiac failure
     Dosage: 20.0MG UNKNOWN
  2. BISOPROLOL [Suspect]
     Active Substance: BISOPROLOL
     Indication: Cardiac failure
     Dosage: 10 MG (2X5 MG)10.0MG UNKNOWN
  3. FUROSEMIDE [Suspect]
     Active Substance: FUROSEMIDE
     Indication: Cardiac failure
     Dosage: UNK, Q2W
  4. FUROSEMIDE [Suspect]
     Active Substance: FUROSEMIDE
     Indication: Cardiac failure
     Dosage: 0.5 DOSAGE FORM (EVERY OTHER DAY)
  5. FUROSEMIDE [Suspect]
     Active Substance: FUROSEMIDE
     Indication: Cardiac failure
     Dosage: (1-2) DAILY
  6. PERINDOPRIL [Suspect]
     Active Substance: PERINDOPRIL
     Indication: Cardiac failure
     Dosage: 4 MG4.0MG UNKNOWN
  7. ENTRESTO [Suspect]
     Active Substance: SACUBITRIL\VALSARTAN
     Indication: Cardiac failure
     Dosage: 1 DOSAGE FORM, (97/103 MG), 1 DF DAILY
  8. ENTRESTO [Suspect]
     Active Substance: SACUBITRIL\VALSARTAN
     Indication: Cardiac failure
     Dosage: 1 DOSAGE FORM, BID (24/26 MG), 2 DF DAILY
  9. ENTRESTO [Suspect]
     Active Substance: SACUBITRIL\VALSARTAN
     Indication: Cardiac failure
     Dosage: 1 DOSAGE FORM, BID (49/51 MG), 2 DF DAILY.
  10. EPLERENONE [Suspect]
     Active Substance: EPLERENONE
     Indication: Cardiac failure
     Dosage: 50.0MG UNKNOWN
  11. EPLERENONE [Suspect]
     Active Substance: EPLERENONE
     Indication: Cardiac failure
     Dosage: 25.0MG UNKNOWN
  12. IVABRADINE [Concomitant]
     Active Substance: IVABRADINE
     Indication: Cardiac failure
     Dosage: 7.5 MG, BID, 15 MG DAILY
  13. IVABRADINE [Concomitant]
     Active Substance: IVABRADINE
     Indication: Cardiac failure
     Dosage: 5 MG, BID, 10 MG DAILY
  14. NEBIVOLOL [Concomitant]
     Active Substance: NEBIVOLOL
     Indication: Cardiac failure
     Dosage: 2.5MG UNKNOWN
  15. LOSARTAN [Concomitant]
     Active Substance: LOSARTAN
     Indication: Cardiac failure
     Dosage: 50.0MG UNKNOWN
  16. BUDESONIDE [Concomitant]
     Active Substance: BUDESONIDE
     Indication: Cardiac failure
     Dosage: 1 DOSAGE FORM (160/4.5 MCG), PRN1.0DF AS REQUIRED
  17. ASPIRIN [Concomitant]
     Active Substance: ASPIRIN
     Indication: Cardiac failure
     Dosage: 100.0MG UNKNOWN
  18. SPIRONOLACTONE [Concomitant]
     Active Substance: SPIRONOLACTONE
     Indication: Cardiac failure
     Dosage: 12.5MG UNKNOWN

REACTIONS (12)
  - Oedema [Recovering/Resolving]
  - Dyspnoea [Recovering/Resolving]
  - Performance status decreased [Recovering/Resolving]
  - Respiratory tract infection [Unknown]
  - Chest discomfort [Unknown]
  - Asthma [Unknown]
  - Swelling [Recovering/Resolving]
  - Chronic obstructive pulmonary disease [Unknown]
  - Middle insomnia [Recovering/Resolving]
  - Insomnia [Recovering/Resolving]
  - Asthenia [Recovering/Resolving]
  - Product use in unapproved indication [Unknown]
